FAERS Safety Report 23090622 (Version 2)
Quarter: 2023Q4

REPORT INFORMATION
  Report Type: Report from Study
  Country: BR (occurrence: BR)
  Receive Date: 20231020
  Receipt Date: 20231030
  Transmission Date: 20240109
  Serious: Yes (Hospitalization)
  Sender: FDA-Public Use
  Company Number: BR-002147023-NVSC2023BR208874

PATIENT
  Age: 57 Year
  Sex: Female
  Weight: 76 kg

DRUGS (3)
  1. KISQALI [Suspect]
     Active Substance: RIBOCICLIB
     Indication: Breast cancer
     Dosage: 3 DOSAGE FORM, QD (AT NIGHT)
     Route: 048
     Dates: start: 202305
  2. KISQALI [Suspect]
     Active Substance: RIBOCICLIB
     Indication: Lung neoplasm malignant
  3. ATENOLOL [Concomitant]
     Active Substance: ATENOLOL
     Indication: Hypertension
     Dosage: 1 DOSAGE FORM, QD (IN MORNING)
     Route: 048
     Dates: start: 202304

REACTIONS (2)
  - Brain neoplasm [Recovered/Resolved]
  - Sluggishness [Recovered/Resolved]

NARRATIVE: CASE EVENT DATE: 20230501
